FAERS Safety Report 15570998 (Version 1)
Quarter: 2018Q4

REPORT INFORMATION
  Report Type: Spontaneous
  Country: US (occurrence: US)
  Receive Date: 20181030
  Receipt Date: 20181030
  Transmission Date: 20190205
  Serious: Yes (Other)
  Sender: FDA-Public Use
  Company Number: None

PATIENT
  Age: 28 Year
  Sex: Female
  Weight: 79.38 kg

DRUGS (2)
  1. WALMART VITAMINS [Concomitant]
  2. NEXPLANON [Suspect]
     Active Substance: ETONOGESTREL

REACTIONS (6)
  - Vaginal haemorrhage [None]
  - Gastrointestinal disorder [None]
  - Inflammation [None]
  - Varicose vein [None]
  - Weight increased [None]
  - Headache [None]

NARRATIVE: CASE EVENT DATE: 20181001
